FAERS Safety Report 9829051 (Version 2)
Quarter: 2014Q1

REPORT INFORMATION
  Report Type: Spontaneous
  Country: US (occurrence: US)
  Receive Date: 20140118
  Receipt Date: 20140118
  Transmission Date: 20141002
  Serious: Yes (Other)
  Sender: FDA-Public Use
  Company Number: US-ROCHE-1317048

PATIENT
  Sex: Male

DRUGS (1)
  1. ERIVEDGE [Suspect]
     Indication: BASAL CELL CARCINOMA
     Dosage: REPORTED BEEN ON DRUG ABOUT 4 WEEKS
     Route: 048
     Dates: start: 201310

REACTIONS (1)
  - Blood creatine phosphokinase increased [Unknown]
